FAERS Safety Report 7936209-X (Version None)
Quarter: 2011Q4

REPORT INFORMATION
  Report Type: 
  Country: None (occurrence: None)
  Receive Date: 20111121
  Receipt Date: 20111111
  Transmission Date: 20120403
  Serious: Yes (Other)
  Sender: FDA-Public Use
  Company Number: DKLU1074695

PATIENT
  Age: 57 Year
  Sex: Female

DRUGS (7)
  1. TRANXENE [Concomitant]
  2. PHENOBARBITAL TAB [Concomitant]
  3. DIURETIC (DIURETICS) [Concomitant]
  4. PEGANONE [Suspect]
     Indication: EPILEPSY
     Dosage: 250 MG MILLIGRAM(S) , 3 IN 1 D, ORAL
     Route: 048
     Dates: start: 19730101
  5. KEPPRA [Concomitant]
  6. FORTEO [Concomitant]
  7. LYRICA [Concomitant]

REACTIONS (2)
  - OSTEOPOROSIS [None]
  - DIPLOPIA [None]
